FAERS Safety Report 6061945-2 (Version None)
Quarter: 2009Q1

REPORT INFORMATION
  Report Type: 
  Country: None (occurrence: None)
  Receive Date: 20090202
  Receipt Date: 20090130
  Transmission Date: 20090719
  Serious: Yes (Life-Threatening, Other)
  Sender: FDA-Public Use
  Company Number: PHEH2008US09523

PATIENT
  Sex: Male
  Weight: 82.086 kg

DRUGS (6)
  1. RECLAST [Suspect]
     Indication: OSTEOPOROSIS
     Dosage: 5 MG, YEARLY
     Dates: start: 20080827, end: 20080827
  2. AMBIEN [Concomitant]
     Indication: SLEEP DISORDER
     Dosage: 10 MG, QHS
     Route: 048
     Dates: start: 20080703, end: 20081202
  3. SULINDAC [Concomitant]
     Indication: OSTEOARTHRITIS
     Dosage: 200 MG, QD-BID
     Route: 048
     Dates: start: 20080703, end: 20081202
  4. NEXIUM [Concomitant]
     Indication: GASTROOESOPHAGEAL REFLUX DISEASE
     Dosage: 40 MG, QD
     Route: 048
     Dates: start: 20080703, end: 20081202
  5. VITAMIN D [Concomitant]
     Indication: VITAMIN D DEFICIENCY
     Dosage: 50000 IU, QMO
     Dates: start: 20081008, end: 20081202
  6. HYDROCODONE COMPOUND [Concomitant]
     Indication: PAIN
     Dosage: 1 TAB Q6H PRN PAIN
     Route: 048
     Dates: start: 20080707

REACTIONS (27)
  - ABASIA [None]
  - ABNORMAL FAECES [None]
  - ARTHRALGIA [None]
  - BACK PAIN [None]
  - BODY TEMPERATURE INCREASED [None]
  - CONSTIPATION [None]
  - DRY EYE [None]
  - DYSPNOEA [None]
  - DYSSTASIA [None]
  - DYSURIA [None]
  - EAR PAIN [None]
  - EYE PAIN [None]
  - FAECES HARD [None]
  - HEADACHE [None]
  - MUSCULOSKELETAL CHEST PAIN [None]
  - MUSCULOSKELETAL DISCOMFORT [None]
  - MUSCULOSKELETAL PAIN [None]
  - MYALGIA [None]
  - NECK PAIN [None]
  - NEUROPATHY PERIPHERAL [None]
  - PAIN [None]
  - PAIN IN EXTREMITY [None]
  - PAIN IN JAW [None]
  - SKIN ODOUR ABNORMAL [None]
  - SUICIDAL IDEATION [None]
  - TINNITUS [None]
  - TRANSIENT ISCHAEMIC ATTACK [None]
